FAERS Safety Report 8812691 (Version 2)
Quarter: 2013Q1

REPORT INFORMATION
  Report Type: Report from Study
  Country: CM (occurrence: CM)
  Receive Date: 20120927
  Receipt Date: 20130109
  Transmission Date: 20140127
  Serious: Yes (Other)
  Sender: FDA-Public Use
  Company Number: CM-GILEAD-2012-0061964

PATIENT
  Age: 0 Year
  Sex: Female

DRUGS (4)
  1. EMTRICITABINE/TENOFOVIR DISOPROXIL FUMARATE [Suspect]
     Indication: HIV INFECTION
     Dosage: 1 DF, QD
     Route: 064
     Dates: start: 20110623
  2. LOPINAVIR W/RITONAVIR [Suspect]
     Indication: HIV INFECTION
     Dosage: 1000 MG, QD
     Route: 064
     Dates: start: 20110623
  3. TARDYFERON [Concomitant]
     Indication: ANAEMIA PROPHYLAXIS
     Dosage: 1 DF, QD
     Route: 064
     Dates: start: 20120610
  4. FANSIDAR [Concomitant]
     Indication: MALARIA PROPHYLAXIS
     Dosage: 3 DF, QD
     Route: 064
     Dates: start: 20120610

REACTIONS (1)
  - Neonatal asphyxia [Recovering/Resolving]
